FAERS Safety Report 7611013-0 (Version None)
Quarter: 2011Q3

REPORT INFORMATION
  Report Type: 
  Country: None (occurrence: None)
  Receive Date: 20110715
  Receipt Date: 20110707
  Transmission Date: 20111222
  Serious: Yes (Hospitalization, Other)
  Sender: FDA-Public Use
  Company Number: US-JNJFOC-20110702983

PATIENT
  Age: 57 Year
  Sex: Female

DRUGS (1)
  1. DURAGESIC-100 [Suspect]
     Indication: PRODUCT USED FOR UNKNOWN INDICATION
     Route: 062

REACTIONS (6)
  - OXYGEN SATURATION DECREASED [None]
  - HYPOTENSION [None]
  - RALES [None]
  - CYANOSIS [None]
  - UNRESPONSIVE TO STIMULI [None]
  - ACCIDENTAL OVERDOSE [None]
